FAERS Safety Report 13053455 (Version 1)
Quarter: 2016Q4

REPORT INFORMATION
  Report Type: Spontaneous
  Country: US (occurrence: US)
  Receive Date: 20161222
  Receipt Date: 20161222
  Transmission Date: 20170207
  Serious: Yes (Other)
  Sender: FDA-Public Use
  Company Number: US-009507513-1612USA008529

PATIENT
  Sex: Female

DRUGS (1)
  1. NEXPLANON [Suspect]
     Active Substance: ETONOGESTREL
     Dosage: 68 MG, UNK
     Route: 059

REACTIONS (4)
  - Abortion [Unknown]
  - Complication associated with device [Unknown]
  - Pregnancy with implant contraceptive [Unknown]
  - Unintended pregnancy [Unknown]
